FAERS Safety Report 6162290-7 (Version None)
Quarter: 2009Q2

REPORT INFORMATION
  Report Type: 
  Country: None (occurrence: None)
  Receive Date: 20090421
  Receipt Date: 20090416
  Transmission Date: 20091009
  Serious: Yes (Hospitalization)
  Sender: FDA-Public Use
  Company Number: US-WYE-H08189009

PATIENT
  Sex: Female
  Weight: 52 kg

DRUGS (6)
  1. ZOSYN [Suspect]
     Indication: UROSEPSIS
     Route: 042
     Dates: start: 20090126, end: 20090204
  2. ONDANSETRON [Concomitant]
     Indication: NAUSEA
     Route: 042
     Dates: start: 20090128, end: 20090204
  3. SODIUM BICARBONATE [Concomitant]
     Route: 048
     Dates: start: 20090126, end: 20090204
  4. TOBRAMYCIN [Concomitant]
     Indication: INFECTION
     Route: 042
     Dates: start: 20090126, end: 20090204
  5. LANSOPRAZOLE [Concomitant]
     Route: 048
     Dates: start: 20090127, end: 20090204
  6. ACETAMINOPHEN [Concomitant]
     Indication: PYREXIA
     Route: 048
     Dates: start: 20090128, end: 20090204

REACTIONS (1)
  - HAEMOLYSIS [None]
